FAERS Safety Report 6019019-2 (Version None)
Quarter: 2008Q4

REPORT INFORMATION
  Report Type: 
  Country: None (occurrence: None)
  Receive Date: 20081221
  Receipt Date: 20081221
  Transmission Date: 20090506
  Serious: Yes (Hospitalization, Other)
  Sender: FDA-Public Use
  Company Number: None

PATIENT
  Age: 20 Year
  Sex: Female
  Weight: 104.7809 kg

DRUGS (2)
  1. LEXAPRO [Suspect]
     Indication: MAJOR DEPRESSION
     Dosage: 20 MG 2 PILLS ONCE A DAY PO
     Route: 048
     Dates: start: 20051019, end: 20081219
  2. WELLBUTRIN [Suspect]
     Indication: MAJOR DEPRESSION
     Dosage: 300 MG PO
     Route: 048
     Dates: start: 20050308, end: 20081205

REACTIONS (20)
  - ABDOMINAL PAIN [None]
  - ANGER [None]
  - CONDITION AGGRAVATED [None]
  - CONFUSIONAL STATE [None]
  - CONTUSION [None]
  - DEPRESSION [None]
  - DIABETES MELLITUS [None]
  - DRY MOUTH [None]
  - EYE IRRITATION [None]
  - FACIAL PAIN [None]
  - HEADACHE [None]
  - HOSTILITY [None]
  - HYPERPHAGIA [None]
  - HYPOPHAGIA [None]
  - MENTAL DISORDER [None]
  - NASAL DISCOMFORT [None]
  - SINUS DISORDER [None]
  - TREMOR [None]
  - URINE FLOW DECREASED [None]
  - VISION BLURRED [None]
